FAERS Safety Report 16103744 (Version 1)
Quarter: 2019Q1

REPORT INFORMATION
  Report Type: Spontaneous
  Country: DK (occurrence: DK)
  Receive Date: 20190322
  Receipt Date: 20190322
  Transmission Date: 20190418
  Serious: Yes (Hospitalization)
  Sender: FDA-Public Use
  Company Number: DK-ALK-ABELLO A/S-2019AA001176

PATIENT

DRUGS (2)
  1. AERIUS (DESLORATADINE) [Concomitant]
     Active Substance: DESLORATADINE
     Indication: SEASONAL ALLERGY
     Dosage: 5 MILLIGRAM, QD
     Route: 048
     Dates: start: 20181029
  2. ACARIZAX 12 SQ-HDM [Suspect]
     Active Substance: DERMATOPHAGOIDES FARINAE\DERMATOPHAGOIDES PTERONYSSINUS
     Indication: CONJUNCTIVITIS ALLERGIC
     Dosage: 12 SQ-HDM, QD
     Route: 060
     Dates: start: 20190228, end: 20190303

REACTIONS (9)
  - Ear discomfort [Recovered/Resolved]
  - Malaise [Recovered/Resolved]
  - Anaphylactic reaction [Recovered/Resolved]
  - Dyspnoea [Recovered/Resolved]
  - Oral pruritus [Recovered/Resolved]
  - Sensation of foreign body [Recovered/Resolved]
  - Chest discomfort [Recovered/Resolved]
  - Nausea [Recovered/Resolved]
  - Back pain [Recovered/Resolved]

NARRATIVE: CASE EVENT DATE: 20190228
